FAERS Safety Report 13378306 (Version 3)
Quarter: 2017Q2

REPORT INFORMATION
  Report Type: Report from Study
  Country: US (occurrence: US)
  Receive Date: 20170328
  Receipt Date: 20170418
  Transmission Date: 20170830
  Serious: Yes (Death, Hospitalization, Other)
  Sender: FDA-Public Use
  Company Number: US-GILEAD-2017-0264670

PATIENT
  Age: 71 Year
  Sex: Female
  Weight: 54.88 kg

DRUGS (2)
  1. AMBRISENTAN [Suspect]
     Active Substance: AMBRISENTAN
     Indication: PULMONARY HYPERTENSION
     Dosage: 5 MG, UNK
     Route: 065
     Dates: start: 20160922
  2. AMBRISENTAN [Suspect]
     Active Substance: AMBRISENTAN
     Indication: CREST SYNDROME

REACTIONS (7)
  - Mental status changes [Fatal]
  - Respiratory failure [Fatal]
  - Pneumonia [Fatal]
  - Confusional state [Fatal]
  - Dyspnoea [Fatal]
  - Hypoxia [Fatal]
  - Condition aggravated [Fatal]

NARRATIVE: CASE EVENT DATE: 20170219
